FAERS Safety Report 6942365-2 (Version None)
Quarter: 2010Q3

REPORT INFORMATION
  Report Type: 
  Country: None (occurrence: None)
  Receive Date: 20100826
  Receipt Date: 20100811
  Transmission Date: 20110219
  Serious: Yes (Other)
  Sender: FDA-Public Use
  Company Number: PHHY2010FR53791

PATIENT
  Sex: Female

DRUGS (3)
  1. TAREG [Suspect]
     Indication: HYPERTENSION
     Dosage: 80 MG DAILY
     Dates: start: 20100401, end: 20100701
  2. LODOZ [Concomitant]
     Indication: HYPERTENSION
     Dosage: UNK
  3. LODOZ [Concomitant]
     Dosage: UNK
     Dates: start: 20100401, end: 20100701

REACTIONS (4)
  - ALANINE AMINOTRANSFERASE INCREASED [None]
  - ASPARTATE AMINOTRANSFERASE INCREASED [None]
  - BLOOD BILIRUBIN INCREASED [None]
  - OCULAR ICTERUS [None]
